FAERS Safety Report 7125129-9 (Version None)
Quarter: 2010Q4

REPORT INFORMATION
  Report Type: 
  Country: None (occurrence: None)
  Receive Date: 20101129
  Receipt Date: 20101027
  Transmission Date: 20110411
  Serious: Yes (Hospitalization, Other)
  Sender: FDA-Public Use
  Company Number: US-AMGEN-USASP2010002032

PATIENT
  Sex: Female

DRUGS (4)
  1. ENBREL [Suspect]
     Indication: RHEUMATOID ARTHRITIS
     Dates: start: 20010501
  2. ORENCIA [Concomitant]
  3. PLAQUENIL                          /00072601/ [Concomitant]
     Dates: start: 20100801
  4. METHOTREXATE [Concomitant]
     Dates: start: 19950101

REACTIONS (28)
  - ABASIA [None]
  - ABDOMINAL PAIN UPPER [None]
  - AMNESIA [None]
  - BLOOD GLUCOSE INCREASED [None]
  - BLOOD PRESSURE INCREASED [None]
  - BONE DENSITY DECREASED [None]
  - BRAIN OEDEMA [None]
  - CHEST DISCOMFORT [None]
  - CONVULSION [None]
  - DIZZINESS [None]
  - DYSPNOEA [None]
  - FATIGUE [None]
  - FINGER DEFORMITY [None]
  - INCONTINENCE [None]
  - INJECTION SITE HAEMATOMA [None]
  - INJECTION SITE PAIN [None]
  - MIGRAINE [None]
  - NAUSEA [None]
  - OSTEOARTHRITIS [None]
  - PHARYNGITIS STREPTOCOCCAL [None]
  - PSYCHOMOTOR HYPERACTIVITY [None]
  - RHEUMATOID ARTHRITIS [None]
  - SEPSIS [None]
  - SINUSITIS [None]
  - SPEECH DISORDER DEVELOPMENTAL [None]
  - SYSTEMIC LUPUS ERYTHEMATOSUS [None]
  - TOOTH LOSS [None]
  - WEIGHT INCREASED [None]
